FAERS Safety Report 8590265-7 (Version None)
Quarter: 2012Q3

REPORT INFORMATION
  Report Type: 
  Country: None (occurrence: None)
  Receive Date: 20120813
  Receipt Date: 20120807
  Transmission Date: 20120928
  Serious: Yes (Other)
  Sender: FDA-Public Use
  Company Number: US-GLAXOSMITHKLINE-A0979329A

PATIENT
  Age: 60 Year
  Sex: Female

DRUGS (3)
  1. ZOVIRAX [Suspect]
     Indication: HERPES SIMPLEX
     Dosage: 5TAB IN THE MORNING
     Route: 048
     Dates: start: 20000101, end: 20060101
  2. SINGULAIR [Concomitant]
  3. LEVOXYL [Concomitant]

REACTIONS (3)
  - HERPES SIMPLEX [None]
  - DRUG EFFECT DECREASED [None]
  - RENAL FAILURE [None]
